FAERS Safety Report 5751297-7 (Version None)
Quarter: 2008Q2

REPORT INFORMATION
  Report Type: 
  Country: None (occurrence: None)
  Receive Date: 20080528
  Receipt Date: 20080516
  Transmission Date: 20081010
  Serious: Yes (Other)
  Sender: FDA-Public Use
  Company Number: US-PFIZER INC-2008032268

PATIENT
  Sex: Male
  Weight: 72.6 kg

DRUGS (8)
  1. GEODON [Suspect]
     Indication: SCHIZOPHRENIA
     Dosage: DAILY DOSE:120MG
  2. ALL OTHER THERAPEUTIC PRODUCTS [Suspect]
     Indication: BLOOD CHOLESTEROL INCREASED
  3. ALL OTHER THERAPEUTIC PRODUCTS [Suspect]
     Indication: BLOOD TRIGLYCERIDES INCREASED
  4. CRESTOR [Concomitant]
  5. AMBIEN [Concomitant]
  6. FEXOFENADINE HYDROCHLORIDE [Concomitant]
  7. ZOLOFT [Concomitant]
  8. XANAX [Concomitant]

REACTIONS (19)
  - ABDOMINAL PAIN UPPER [None]
  - ANXIETY [None]
  - BLOOD TRIGLYCERIDES INCREASED [None]
  - CONSTIPATION [None]
  - DISTURBANCE IN ATTENTION [None]
  - EXTRAPYRAMIDAL DISORDER [None]
  - EYE MOVEMENT DISORDER [None]
  - HEART RATE INCREASED [None]
  - HYPERTENSION [None]
  - ILL-DEFINED DISORDER [None]
  - MOVEMENT DISORDER [None]
  - MUSCLE TWITCHING [None]
  - MUSCULOSKELETAL STIFFNESS [None]
  - NAUSEA [None]
  - PAIN IN EXTREMITY [None]
  - PANIC ATTACK [None]
  - TACHYCARDIA [None]
  - TREMOR [None]
  - VISION BLURRED [None]
